FAERS Safety Report 23630405 (Version 3)
Quarter: 2025Q2

REPORT INFORMATION
  Report Type: Spontaneous
  Country: US (occurrence: US)
  Receive Date: 20240314
  Receipt Date: 20250513
  Transmission Date: 20250717
  Serious: Yes (Death, Other)
  Sender: AMGEN
  Company Number: US-AMGEN-USASP2024048461

PATIENT

DRUGS (2)
  1. BEVACIZUMAB [Suspect]
     Active Substance: BEVACIZUMAB
     Indication: Hepatocellular carcinoma
     Route: 065
  2. ATEZOLIZUMAB [Suspect]
     Active Substance: ATEZOLIZUMAB
     Indication: Hepatocellular carcinoma
     Route: 065

REACTIONS (19)
  - Death [Fatal]
  - Immune-mediated adverse reaction [Fatal]
  - Radiation hepatitis [Fatal]
  - Hepatocellular carcinoma [Unknown]
  - Colitis [Unknown]
  - Hepatitis [Unknown]
  - Pneumonitis [Unknown]
  - Ascites [Unknown]
  - Haemorrhage [Unknown]
  - Hepatic function abnormal [Unknown]
  - Off label use [Unknown]
  - Therapy partial responder [Unknown]
  - Weight increased [Unknown]
  - Waist circumference increased [Unknown]
  - Blood alkaline phosphatase increased [Unknown]
  - Decreased appetite [Unknown]
  - Fatigue [Unknown]
  - Abdominal pain [Unknown]
  - Constipation [Unknown]
